FAERS Safety Report 20016887 (Version 1)
Quarter: 2021Q4

REPORT INFORMATION
  Report Type: Spontaneous
  Country: US (occurrence: None)
  Receive Date: 20211105
  Receipt Date: 20211105
  Transmission Date: 20220303
  Serious: No
  Sender: FDA-Public Use
  Company Number: None

PATIENT
  Age: 63 Year
  Sex: Female
  Weight: 109.8 kg

DRUGS (12)
  1. CYMBALTA [Suspect]
     Active Substance: DULOXETINE HYDROCHLORIDE
     Indication: Bipolar disorder
     Dosage: OTHER QUANTITY : 1 CAPSULE(S);?FREQUENCY : DAILY;?
     Route: 048
  2. CYMBALTA [Suspect]
     Active Substance: DULOXETINE HYDROCHLORIDE
     Indication: Back pain
  3. GABAPENTIN [Concomitant]
     Active Substance: GABAPENTIN
  4. ATORVASTATIN [Concomitant]
     Active Substance: ATORVASTATIN
  5. levothyrosxine [Concomitant]
  6. SEROQUEL [Concomitant]
     Active Substance: QUETIAPINE FUMARATE
  7. LAMICTAL [Concomitant]
     Active Substance: LAMOTRIGINE
  8. MELATONIN [Concomitant]
     Active Substance: MELATONIN
  9. VITAMIN C [Concomitant]
     Active Substance: ASCORBIC ACID
  10. VITAMIN D3 [Concomitant]
     Active Substance: CHOLECALCIFEROL
  11. ASPIRIN [Concomitant]
     Active Substance: ASPIRIN
  12. FISH OIL [Concomitant]
     Active Substance: FISH OIL

REACTIONS (1)
  - Hyperhidrosis [None]

NARRATIVE: CASE EVENT DATE: 20161101
